FAERS Safety Report 8580273 (Version 2)
Quarter: 2013Q2

REPORT INFORMATION
  Report Type: Spontaneous
  Country: US (occurrence: US)
  Receive Date: 20120525
  Receipt Date: 20130625
  Transmission Date: 20140414
  Serious: No
  Sender: FDA-Public Use
  Company Number: US-GLAXOSMITHKLINE-A0967672A

PATIENT
  Age: 74 Year
  Sex: Female

DRUGS (5)
  1. ESTROGEN [Concomitant]
     Route: 067
  2. VERAMYST [Suspect]
     Indication: UPPER-AIRWAY COUGH SYNDROME
     Dosage: 2PUFF PER DAY
     Route: 045
     Dates: start: 201007
  3. INDERAL [Concomitant]
  4. PREDNISONE [Concomitant]
  5. PROTONIX [Concomitant]

REACTIONS (2)
  - Drug ineffective [Not Recovered/Not Resolved]
  - Product quality issue [Unknown]
